FAERS Safety Report 24856365 (Version 1)
Quarter: 2025Q1

REPORT INFORMATION
  Report Type: Spontaneous
  Country: US (occurrence: US)
  Receive Date: 20250117
  Receipt Date: 20250117
  Transmission Date: 20250408
  Serious: Yes (Life-Threatening)
  Sender: PFIZER
  Company Number: US-PFIZER INC-PV202500006945

PATIENT
  Age: 9 Month
  Sex: Female

DRUGS (6)
  1. FENTANYL CITRATE [Suspect]
     Active Substance: FENTANYL CITRATE
     Indication: Sedation
  2. FENTANYL CITRATE [Suspect]
     Active Substance: FENTANYL CITRATE
  3. MIDAZOLAM [Suspect]
     Active Substance: MIDAZOLAM
     Indication: Sedation
  4. LORAZEPAM [Suspect]
     Active Substance: LORAZEPAM
     Indication: Sedation
     Dosage: 1.1 MG/KG, EVERY 4 HRS
     Route: 042
  5. PANCURONIUM BROMIDE [Suspect]
     Active Substance: PANCURONIUM BROMIDE
     Indication: Sedation
  6. METHADONE [Suspect]
     Active Substance: METHADONE HYDROCHLORIDE
     Indication: Sedation
     Dosage: 1.4 MG/KG, 4X/DAY, EVERY 6 HOURS
     Route: 042

REACTIONS (2)
  - Drug ineffective [Unknown]
  - Prescribed overdose [Unknown]
